FAERS Safety Report 20319376 (Version 3)
Quarter: 2022Q3

REPORT INFORMATION
  Report Type: Other
  Country: JP (occurrence: JP)
  Receive Date: 20220110
  Receipt Date: 20220810
  Transmission Date: 20221027
  Serious: Yes (Other)
  Sender: FDA-Public Use
  Company Number: JP-CHUGAI-2021034708

PATIENT
  Age: 62 Year
  Sex: Female
  Weight: 41.8 kg

DRUGS (4)
  1. ATEZOLIZUMAB [Suspect]
     Active Substance: ATEZOLIZUMAB
     Indication: Lung adenocarcinoma
     Dosage: MOST RECENT DOSE ON 21/JUL/2021
     Route: 041
     Dates: start: 20210303
  2. BEVACIZUMAB [Suspect]
     Active Substance: BEVACIZUMAB
     Indication: Lung adenocarcinoma
     Dosage: MOST RECENT DOSE ON 21/JUL/2021, (STRENGTH: 100MG/4ML)
     Route: 041
     Dates: start: 20210303
  3. CARBOPLATIN [Suspect]
     Active Substance: CARBOPLATIN
     Indication: Lung adenocarcinoma
     Dosage: 420 MILLIGRAM
     Route: 041
     Dates: start: 20210303, end: 20210519
  4. PACLITAXEL [Suspect]
     Active Substance: PACLITAXEL
     Indication: Lung adenocarcinoma
     Dosage: 260 MILLIGRAM
     Route: 041
     Dates: start: 20210303, end: 20210519

REACTIONS (7)
  - Perineal abscess [Recovered/Resolved]
  - Neutrophil count decreased [Recovered/Resolved]
  - Purpura [Recovered/Resolved]
  - Pain in extremity [Recovered/Resolved]
  - Malaise [Recovered/Resolved]
  - Platelet count decreased [Recovered/Resolved]
  - Insomnia [Recovered/Resolved]

NARRATIVE: CASE EVENT DATE: 20210306
